FAERS Safety Report 10025121 (Version 1)
Quarter: 2014Q1

REPORT INFORMATION
  Report Type: Spontaneous
  Country: US (occurrence: None)
  Receive Date: 20140212
  Receipt Date: 20140212
  Transmission Date: 20141002
  Serious: Yes (Hospitalization)
  Sender: FDA-Public Use
  Company Number: 13-05081

PATIENT
  Age: 51 Year
  Sex: Female
  Weight: 52.62 kg

DRUGS (2)
  1. ALBUTEROL SULFATE [Suspect]
     Indication: CHRONIC OBSTRUCTIVE PULMONARY DISEASE
     Dosage: 1 VIAL QID 054
  2. UNKNOWN INHALER [Concomitant]

REACTIONS (3)
  - Respiratory failure [None]
  - Hypoxia [None]
  - Lung infection [None]
